FAERS Safety Report 17447452 (Version 2)
Quarter: 2020Q1

REPORT INFORMATION
  Report Type: Spontaneous
  Country: TR (occurrence: TR)
  Receive Date: 20200221
  Receipt Date: 20200227
  Transmission Date: 20200409
  Serious: Yes (Other)
  Sender: FDA-Public Use
  Company Number: TR-GILEAD-2020-0451821

PATIENT
  Age: 50 Year
  Sex: Female

DRUGS (6)
  1. SALAZOPYRIN [Concomitant]
     Active Substance: SULFASALAZINE
     Indication: COLITIS ULCERATIVE
  2. INFLIXIMAB [Concomitant]
     Active Substance: INFLIXIMAB
     Indication: SPONDYLOARTHROPATHY
  3. VIREAD [Suspect]
     Active Substance: TENOFOVIR DISOPROXIL FUMARATE
     Indication: HEPATITIS B
     Dosage: UNK
     Route: 065
     Dates: start: 2017, end: 201907
  4. INFLIXIMAB [Concomitant]
     Active Substance: INFLIXIMAB
     Indication: COLITIS ULCERATIVE
  5. BUDESONIDE;FORMOTEROL [Concomitant]
     Active Substance: BUDESONIDE\FORMOTEROL
     Indication: ASTHMA
  6. LEVOCETIRIZINE;MONTELUKAST [Concomitant]
     Indication: ASTHMA

REACTIONS (5)
  - Asthma [Unknown]
  - Osteoporosis [Unknown]
  - Spondyloarthropathy [Unknown]
  - Colitis ulcerative [Unknown]
  - Proteinuria [Unknown]
